FAERS Safety Report 4443531-0 (Version None)
Quarter: 2004Q3

REPORT INFORMATION
  Report Type: 
  Country: None (occurrence: None)
  Receive Date: 20040901
  Receipt Date: 20040827
  Transmission Date: 20050211
  Serious: Yes (Death)
  Sender: FDA-Public Use
  Company Number: J081-002-001750

PATIENT
  Age: 85 Year
  Sex: 0

DRUGS (1)
  1. ARICEPT [Suspect]
     Indication: DEMENTIA ALZHEIMER'S TYPE
     Dosage: 5 MG, 1 IIN 1 D, ORAL
     Route: 048

REACTIONS (3)
  - CONVULSION [None]
  - PNEUMONIA ASPIRATION [None]
  - RESTLESSNESS [None]
